FAERS Safety Report 5818726-1 (Version None)
Quarter: 2008Q3

REPORT INFORMATION
  Report Type: 
  Country: None (occurrence: None)
  Receive Date: 20080723
  Receipt Date: 20080716
  Transmission Date: 20090109
  Serious: Yes (Hospitalization)
  Sender: FDA-Public Use
  Company Number: CO-BAYER-200815981LA

PATIENT
  Age: 20 Year
  Sex: Male
  Weight: 59 kg

DRUGS (2)
  1. BETAFERON [Suspect]
     Indication: MULTIPLE SCLEROSIS
     Route: 058
  2. BETAFERON [Suspect]
     Route: 058
     Dates: start: 20080116

REACTIONS (1)
  - LEUKOPENIA [None]
